FAERS Safety Report 24878546 (Version 1)
Quarter: 2025Q1

REPORT INFORMATION
  Report Type: Spontaneous
  Country: ES (occurrence: ES)
  Receive Date: 20250123
  Receipt Date: 20250123
  Transmission Date: 20250408
  Serious: Yes (Death, Hospitalization, Other)
  Sender: PFIZER
  Company Number: None

PATIENT
  Age: 90 Year
  Sex: Male

DRUGS (1)
  1. PRISTIQ EXTENDED-RELEASE [Suspect]
     Active Substance: DESVENLAFAXINE SUCCINATE
     Indication: Depression
     Dosage: 50 MG, 1X/DAY, 1-0-0
     Route: 048
     Dates: start: 20190328

REACTIONS (3)
  - Hypovolaemic shock [Fatal]
  - Retroperitoneal haematoma [Fatal]
  - Melaena [Fatal]

NARRATIVE: CASE EVENT DATE: 20241001
